FAERS Safety Report 17872363 (Version 1)
Quarter: 2020Q2

REPORT INFORMATION
  Report Type: Spontaneous
  Country: PL (occurrence: PL)
  Receive Date: 20200608
  Receipt Date: 20200608
  Transmission Date: 20200714
  Serious: Yes (Other)
  Sender: FDA-Public Use
  Company Number: PL-TOPROL ACQUISITION LLC-2020-TOP-000256

PATIENT
  Age: 68 Year
  Sex: Male

DRUGS (8)
  1. HEPARIN [Concomitant]
     Active Substance: HEPARIN SODIUM
  2. SPIRONOLACTONE. [Concomitant]
     Active Substance: SPIRONOLACTONE
  3. FUROSEMIDE. [Concomitant]
     Active Substance: FUROSEMIDE
  4. ZOFENOPRIL [Concomitant]
     Active Substance: ZOFENOPRIL
  5. METOPROLOL SUCCINATE. [Suspect]
     Active Substance: METOPROLOL SUCCINATE
     Dosage: 200 MG, UNK
     Route: 048
  6. METOPROLOL SUCCINATE. [Suspect]
     Active Substance: METOPROLOL SUCCINATE
     Dosage: 150 MG, UNK
     Route: 048
  7. POTASSIUM [Concomitant]
     Active Substance: POTASSIUM
  8. GLYCERYL TRINITRATE [Concomitant]
     Active Substance: NITROGLYCERIN

REACTIONS (2)
  - Hyponatraemia [Unknown]
  - Renal impairment [Unknown]
